FAERS Safety Report 12737755 (Version 2)
Quarter: 2018Q2

REPORT INFORMATION
  Report Type: Spontaneous
  Country: US (occurrence: US)
  Receive Date: 20160912
  Receipt Date: 20180515
  Transmission Date: 20180711
  Serious: No
  Sender: FDA-Public Use
  Company Number: US-SA-2016SA119029

PATIENT

DRUGS (4)
  1. SOLOSTAR [Concomitant]
     Active Substance: DEVICE
  2. TOUJEO [Suspect]
     Active Substance: INSULIN GLARGINE
     Indication: DIABETES MELLITUS
     Route: 065
  3. FLEXPEN [Concomitant]
     Active Substance: UNSPECIFIED INGREDIENT
  4. NOVOLOG [Suspect]
     Active Substance: INSULIN ASPART
     Indication: DIABETES MELLITUS
     Route: 065

REACTIONS (3)
  - Glycosylated haemoglobin increased [Unknown]
  - Visual impairment [Unknown]
  - Blood glucose increased [Unknown]
